FAERS Safety Report 5677303-6 (Version None)
Quarter: 2008Q1

REPORT INFORMATION
  Report Type: 
  Country: None (occurrence: None)
  Receive Date: 20080320
  Receipt Date: 20080320
  Transmission Date: 20080703
  Serious: Yes (Death, Hospitalization)
  Sender: FDA-Public Use
  Company Number: None

PATIENT
  Sex: Male
  Weight: 96.8 kg

DRUGS (2)
  1. CYTARABINE [Suspect]
     Dosage: 1456 MG
  2. DAUNORUBICIN HCL [Suspect]
     Dosage: 540 MG

REACTIONS (14)
  - ALANINE AMINOTRANSFERASE INCREASED [None]
  - ASPARTATE AMINOTRANSFERASE INCREASED [None]
  - ASPIRATION [None]
  - BLOOD CULTURE POSITIVE [None]
  - CAECITIS [None]
  - CARDIO-RESPIRATORY ARREST [None]
  - DIALYSIS [None]
  - DRUG TOXICITY [None]
  - ENTEROCOCCAL INFECTION [None]
  - FEBRILE NEUTROPENIA [None]
  - HYPERKALAEMIA [None]
  - RENAL FAILURE [None]
  - SEPSIS [None]
  - VOMITING [None]
